FAERS Safety Report 7544441-2 (Version None)
Quarter: 2011Q2

REPORT INFORMATION
  Report Type: 
  Country: None (occurrence: None)
  Receive Date: 20110613
  Receipt Date: 20091016
  Transmission Date: 20111010
  Serious: Yes (Death, Hospitalization, Other)
  Sender: FDA-Public Use
  Company Number: PHHY2009JP24320

PATIENT
  Age: 80 Year
  Sex: Male

DRUGS (16)
  1. RIKAVERIN [Concomitant]
     Dosage: 1500 MG, UNK
     Route: 048
     Dates: start: 20090416, end: 20090614
  2. ARICEPT [Concomitant]
     Dosage: 5 MG, UNK
     Route: 048
     Dates: start: 20090416, end: 20090614
  3. TAMIFLU [Concomitant]
     Dosage: 150 MG, UNK
     Route: 048
     Dates: start: 20090504, end: 20090508
  4. RED BLOOD CELLS, CONCENTRATED [Concomitant]
     Dosage: 4 UNITS EVERY TWO WEEKS
     Route: 065
     Dates: start: 20090508
  5. RED BLOOD CELLS, CONCENTRATED [Concomitant]
     Indication: ANAEMIA
     Dosage: 4 UNITS EVERY TWO WEEKS
     Route: 065
     Dates: start: 20090416
  6. RED BLOOD CELLS, CONCENTRATED [Concomitant]
     Indication: PANCYTOPENIA
     Dosage: 4 UNITS EVERY TWO WEEKS
     Route: 065
     Dates: start: 20090427
  7. RED BLOOD CELLS, CONCENTRATED [Concomitant]
     Dosage: 6 UNITS
     Route: 065
     Dates: start: 20090612
  8. CANDESARTAN CILEXETIL [Concomitant]
     Dosage: 4 MG, UNK
     Route: 048
     Dates: start: 20090416, end: 20090614
  9. GRAMALIL [Concomitant]
     Dosage: 25 MG, UNK
     Route: 048
     Dates: start: 20090507, end: 20090614
  10. EXJADE [Suspect]
     Indication: IRON OVERLOAD
     Dosage: 1000 MG, DAILY
     Route: 048
     Dates: start: 20090416, end: 20090614
  11. ADONA [Concomitant]
     Dosage: 90 MG, UNK
     Route: 048
     Dates: start: 20090416, end: 20090614
  12. SEROQUEL [Concomitant]
     Dosage: 25 MG, UNK
     Route: 048
     Dates: start: 20090511, end: 20090614
  13. RED BLOOD CELLS, CONCENTRATED [Concomitant]
     Dosage: 4 UNITS EVERY TWO WEEKS
     Route: 065
     Dates: start: 20090519
  14. RED BLOOD CELLS, CONCENTRATED [Concomitant]
     Dosage: 4 UNITS EVERY TWO WEEKS
     Route: 065
     Dates: start: 20090601
  15. PREDNISOLONE [Concomitant]
     Indication: MYELODYSPLASTIC SYNDROME
     Dosage: 10 MG, UNK
     Route: 048
     Dates: start: 20090416, end: 20090614
  16. MARZULENE S [Concomitant]
     Dosage: 1.5 G, UNK
     Route: 048
     Dates: start: 20090416, end: 20090614

REACTIONS (12)
  - PYREXIA [None]
  - RESTLESSNESS [None]
  - C-REACTIVE PROTEIN INCREASED [None]
  - BLOOD UREA INCREASED [None]
  - PANCYTOPENIA [None]
  - HYPOALBUMINAEMIA [None]
  - ANAEMIA [None]
  - DELIRIUM [None]
  - WHITE BLOOD CELL COUNT DECREASED [None]
  - INFLUENZA [None]
  - DEMENTIA [None]
  - PNEUMONIA [None]
